FAERS Safety Report 17657318 (Version 1)
Quarter: 2020Q2

REPORT INFORMATION
  Report Type: Report from Study
  Country: US (occurrence: US)
  Receive Date: 20200410
  Receipt Date: 20200410
  Transmission Date: 20200713
  Serious: Yes (Other)
  Sender: FDA-Public Use
  Company Number: US-FERRINGPH-2020FE02264

PATIENT
  Sex: Male

DRUGS (3)
  1. DEGARELIX [Suspect]
     Active Substance: DEGARELIX
     Indication: PROSTATE CANCER
     Dosage: 240 MG, ONCE/SINGLE
     Route: 058
  2. CYCLOPHOSPHAMIDE. [Suspect]
     Active Substance: CYCLOPHOSPHAMIDE
     Indication: PROSTATE CANCER
     Dosage: 200 MG/M2, ONCE/SINGLE
     Route: 042
  3. GVAX PROSTATE [Suspect]
     Active Substance: INVESTIGATIONAL PRODUCT
     Indication: PROSTATE CANCER
     Dosage: 2.5 X 10^8 PC3 CELLS, 1.6 X 10^8 LNCAP CELLS, ONCE/SINGLE
     Route: 065

REACTIONS (23)
  - Fatigue [Unknown]
  - Abdominal pain [Unknown]
  - Urinary incontinence [Unknown]
  - Aspartate aminotransferase increased [Unknown]
  - Localised oedema [Unknown]
  - Pyrexia [Unknown]
  - Malaise [Unknown]
  - Erectile dysfunction [Unknown]
  - Rash [Unknown]
  - Dizziness [Unknown]
  - Myalgia [Unknown]
  - Lethargy [Unknown]
  - Cerebral ischaemia [Unknown]
  - Influenza like illness [Unknown]
  - Hot flush [Unknown]
  - Headache [Unknown]
  - Alanine aminotransferase increased [Unknown]
  - Injection site reaction [Unknown]
  - Testicular disorder [Unknown]
  - Post procedural haematoma [Unknown]
  - Chills [Unknown]
  - Nausea [Unknown]
  - Arthralgia [Unknown]
